FAERS Safety Report 5757090-3 (Version None)
Quarter: 2008Q2

REPORT INFORMATION
  Report Type: 
  Country: None (occurrence: None)
  Receive Date: 20080603
  Receipt Date: 20080530
  Transmission Date: 20081010
  Serious: Yes (Hospitalization)
  Sender: FDA-Public Use
  Company Number: B0522958A

PATIENT
  Age: 78 Year
  Sex: Male
  Weight: 65 kg

DRUGS (9)
  1. SULTANOL [Suspect]
     Indication: CHRONIC OBSTRUCTIVE PULMONARY DISEASE
     Route: 055
     Dates: start: 20080319
  2. ASTOMIN [Concomitant]
     Indication: CHRONIC OBSTRUCTIVE PULMONARY DISEASE
     Route: 048
  3. CLEANAL [Concomitant]
     Indication: CHRONIC OBSTRUCTIVE PULMONARY DISEASE
     Route: 048
  4. NORVASC [Concomitant]
     Indication: HYPERTENSION
     Route: 048
  5. UNKNOWN DRUG [Concomitant]
     Indication: HYPERTENSION
     Route: 048
  6. GLYSENNID [Concomitant]
     Indication: CONSTIPATION
     Route: 048
     Dates: start: 20080118
  7. TERSIGAN [Concomitant]
     Indication: CHRONIC OBSTRUCTIVE PULMONARY DISEASE
     Route: 055
     Dates: start: 20080313
  8. CHINESE MEDICINE [Concomitant]
     Indication: CHRONIC OBSTRUCTIVE PULMONARY DISEASE
     Route: 048
     Dates: start: 20080405
  9. UNKNOWN DRUG [Concomitant]
     Route: 062
     Dates: start: 20080508

REACTIONS (2)
  - CHRONIC OBSTRUCTIVE PULMONARY DISEASE [None]
  - DYSPNOEA [None]
